FAERS Safety Report 18936961 (Version 2)
Quarter: 2021Q1

REPORT INFORMATION
  Report Type: Spontaneous
  Country: JP (occurrence: JP)
  Receive Date: 20210225
  Receipt Date: 20210331
  Transmission Date: 20210420
  Serious: Yes (Other)
  Sender: FDA-Public Use
  Company Number: JP-REGENERON PHARMACEUTICALS, INC.-2021-27609

PATIENT

DRUGS (5)
  1. BAYASPIRIN 100 MG [Concomitant]
     Active Substance: ASPIRIN
     Indication: ANTICOAGULANT THERAPY
     Dosage: DAILY DOSE 1 DF
     Route: 048
     Dates: start: 20200715
  2. EYLEA [Suspect]
     Active Substance: AFLIBERCEPT
     Indication: RETINAL VEIN OCCLUSION
     Dosage: LEFT EYE,DAILY DOSE 2 MG
     Route: 031
     Dates: start: 20210128, end: 20210128
  3. DIQUAS [Concomitant]
     Active Substance: DIQUAFOSOL TETRASODIUM
     Indication: DRY EYE
     Dosage: BOTH EYES,DAILY DOSE 4 DROP
     Route: 047
     Dates: start: 20110216
  4. CRAVIT [Concomitant]
     Active Substance: LEVOFLOXACIN
     Indication: PRODUCT USED FOR UNKNOWN INDICATION
     Dosage: LEFT EYE,DAILY DOSE 3 DROP
     Route: 047
     Dates: start: 20200126, end: 20210205
  5. HYALEIN [Concomitant]
     Active Substance: HYALURONATE SODIUM
     Indication: DRY EYE
     Dosage: BOTH EYES,DAILY DOSE 4 DROP
     Route: 047
     Dates: start: 20140717

REACTIONS (2)
  - Hypotony of eye [Recovered/Resolved]
  - Abnormal sensation in eye [Not Recovered/Not Resolved]

NARRATIVE: CASE EVENT DATE: 20210129
